FAERS Safety Report 6683197-2 (Version None)
Quarter: 2010Q2

REPORT INFORMATION
  Report Type: 
  Country: None (occurrence: None)
  Receive Date: 20100415
  Receipt Date: 20100406
  Transmission Date: 20101027
  Serious: Yes (Other)
  Sender: FDA-Public Use
  Company Number: US-SANOFI-AVENTIS-2010SA013663

PATIENT
  Age: 73 Year
  Sex: Female

DRUGS (16)
  1. LANTUS [Suspect]
     Dosage: DOSE:10 UNIT(S)
     Route: 058
     Dates: start: 20090109
  2. SOLOSTAR [Suspect]
     Dates: start: 20090109
  3. METFORMIN HCL [Concomitant]
  4. DIOVANE [Concomitant]
  5. ASPIRIN [Concomitant]
  6. ALBUTEROL [Concomitant]
     Dosage: AS NEEDED
  7. LASIX [Concomitant]
  8. LIPITOR [Concomitant]
  9. MAGNESIUM OXIDE [Concomitant]
  10. METHOTREXATE [Concomitant]
  11. METOPROLOL TARTRATE [Concomitant]
  12. NEXIUM /UNK/ [Concomitant]
  13. PLAVIX [Concomitant]
  14. POTASSIUM [Concomitant]
  15. REMICADE [Concomitant]
  16. SOTALOL HCL [Concomitant]

REACTIONS (5)
  - BLOOD GLUCOSE INCREASED [None]
  - FALL [None]
  - FRACTURE [None]
  - INJECTION SITE HAEMATOMA [None]
  - INJECTION SITE HAEMORRHAGE [None]
